FAERS Safety Report 6147644-7 (Version None)
Quarter: 2009Q2

REPORT INFORMATION
  Report Type: 
  Country: None (occurrence: None)
  Receive Date: 20090408
  Receipt Date: 20090326
  Transmission Date: 20091009
  Serious: Yes (Life-Threatening, Hospitalization)
  Sender: FDA-Public Use
  Company Number: IL-SANOFI-SYNTHELABO-D01200807852

PATIENT
  Sex: Male
  Weight: 80 kg

DRUGS (11)
  1. CLOPIDOGREL [Suspect]
     Indication: ACUTE CORONARY SYNDROME
     Dosage: 300 MG (+PLACEBO) D1 FOLLOWED BY 75 MG (+PLACEBO) D2 TO D7; 75 MG FROM D8 TO 30
     Route: 048
  2. ACTRAPID [Concomitant]
  3. FENTANYL [Concomitant]
  4. CEFAMEZIN [Concomitant]
  5. DORMICUM [Concomitant]
  6. FUSID [Concomitant]
     Dosage: 20 MG
     Route: 042
  7. DOPAMINE HCL [Concomitant]
  8. ADRENALINE [Concomitant]
  9. CLOPIDOGREL [Suspect]
     Indication: ACUTE CORONARY SYNDROME
     Dosage: 600 MG LD D1 FOLLOWED BY 150 MG FROM D2 TO D7; 75 MG FROM D8 TO 30
     Route: 048
     Dates: start: 20081017, end: 20081017
  10. ASA HIGH DOSE [Concomitant]
     Indication: ACUTE CORONARY SYNDROME
     Dosage: AT LEAST 300 MG D1; 300-325 MG FROM D2 TO D30
     Route: 048
     Dates: start: 20081017
  11. ASA HIGH DOSE [Concomitant]
     Dosage: AT LEAST 300 MG D1; 300-325 MG FROM D2 TO D30
     Route: 048
     Dates: end: 20081115

REACTIONS (1)
  - CARDIAC PERFORATION [None]
